FAERS Safety Report 5079641-7 (Version None)
Quarter: 2006Q3

REPORT INFORMATION
  Report Type: 
  Country: None (occurrence: None)
  Receive Date: 20060808
  Receipt Date: 20060724
  Transmission Date: 20061208
  Serious: Yes (Hospitalization)
  Sender: FDA-Public Use
  Company Number: 2006VX000757

PATIENT
  Age: 66 Year
  Sex: Male
  Weight: 52 kg

DRUGS (4)
  1. PERMAX [Suspect]
     Indication: PARKINSON'S DISEASE
     Dosage: 750 UG; QD; PO
     Route: 048
     Dates: start: 20040722, end: 20040817
  2. PERMAX [Suspect]
     Indication: PARKINSON'S DISEASE
     Dosage: 750 UG; QD; PO
     Route: 048
     Dates: start: 20040818, end: 20060627
  3. SELEGILINE HCL [Concomitant]
  4. NEO DOPASTON [Concomitant]

REACTIONS (4)
  - BALANCE DISORDER [None]
  - FALL [None]
  - LOSS OF CONSCIOUSNESS [None]
  - PERICARDITIS CONSTRICTIVE [None]
